FAERS Safety Report 9374876 (Version 1)
Quarter: 2013Q2

REPORT INFORMATION
  Report Type: Spontaneous
  Country: US (occurrence: US)
  Receive Date: 20130628
  Receipt Date: 20130628
  Transmission Date: 20140414
  Serious: Yes (Other)
  Sender: FDA-Public Use
  Company Number: US-BAYER-2013-076879

PATIENT
  Age: 47 Year
  Sex: 0

DRUGS (12)
  1. ALEVE CAPLET [Suspect]
  2. IBUPROFEN [Suspect]
  3. GABAPENTIN [Concomitant]
  4. AMITRIPTYLINE [Concomitant]
  5. CYMBALTA [Concomitant]
  6. TRAMADOL [Concomitant]
     Indication: PAIN
  7. ROPINIROLE [Concomitant]
     Indication: MYALGIA
  8. ROPINIROLE [Concomitant]
     Indication: RESTLESS LEGS SYNDROME
  9. FLEXERIL [Concomitant]
     Indication: MYALGIA
  10. FLEXERIL [Concomitant]
     Indication: RESTLESS LEGS SYNDROME
  11. PROPANOLOL [Concomitant]
  12. LEVOTHYROXINE [Concomitant]

REACTIONS (5)
  - Hepatic enzyme increased [None]
  - Dyspepsia [None]
  - Pharyngeal inflammation [None]
  - Blood pressure increased [None]
  - Barrett^s oesophagus [None]
